FAERS Safety Report 5471859-4 (Version None)
Quarter: 2007Q3

REPORT INFORMATION
  Report Type: 
  Country: None (occurrence: None)
  Receive Date: 20070928
  Receipt Date: 20070709
  Transmission Date: 20080115
  Serious: No
  Sender: FDA-Public Use
  Company Number: US-BRISTOL-MYERS SQUIBB COMPANY-13838511

PATIENT
  Age: 55 Year
  Sex: Male

DRUGS (2)
  1. DEFINITY [Suspect]
     Indication: ECHOCARDIOGRAM
     Route: 042
     Dates: start: 20070706, end: 20070706
  2. SODIUM CHLORIDE [Concomitant]
     Indication: ECHOCARDIOGRAM
     Route: 042
     Dates: start: 20070706, end: 20070706

REACTIONS (3)
  - PRURITUS [None]
  - RASH [None]
  - URTICARIA [None]
